FAERS Safety Report 23785244 (Version 1)
Quarter: 2024Q2

REPORT INFORMATION
  Report Type: Spontaneous
  Country: SK (occurrence: None)
  Receive Date: 20240425
  Receipt Date: 20240425
  Transmission Date: 20240716
  Serious: Yes (Hospitalization)
  Sender: FDA-Public Use
  Company Number: SK-ROCHE-3548951

PATIENT
  Sex: Female

DRUGS (2)
  1. TECENTRIQ [Suspect]
     Active Substance: ATEZOLIZUMAB
     Indication: Non-small cell lung cancer metastatic
     Dosage: ON 01/FEB/2024, SHE RECEIVED THE SECOND DOSE OF ATEZOLIZUMAB.
     Route: 042
     Dates: start: 20240108
  2. MYCOPHENOLATE MOFETIL [Suspect]
     Active Substance: MYCOPHENOLATE MOFETIL
     Indication: Non-small cell lung cancer metastatic
     Route: 065

REACTIONS (4)
  - Overlap syndrome [Unknown]
  - Myositis [Unknown]
  - Myocarditis [Unknown]
  - Myasthenia gravis [Unknown]

NARRATIVE: CASE EVENT DATE: 20240215
